FAERS Safety Report 10337741 (Version 1)
Quarter: 2014Q3

REPORT INFORMATION
  Report Type: Spontaneous
  Country: US (occurrence: US)
  Receive Date: 20140724
  Receipt Date: 20140724
  Transmission Date: 20150326
  Serious: No
  Sender: FDA-Public Use
  Company Number: US-UNITED THERAPEUTICS-UTC-045545

PATIENT
  Sex: Female

DRUGS (14)
  1. WARFARIN [Concomitant]
     Active Substance: WARFARIN
  2. ALDACTONE [Concomitant]
     Active Substance: SPIRONOLACTONE
  3. PRILOSEC [Concomitant]
     Active Substance: OMEPRAZOLE MAGNESIUM
  4. TRACLEER [Concomitant]
     Active Substance: BOSENTAN\BOSENTAN MONOHYDRATE
  5. PREDNISONE. [Concomitant]
     Active Substance: PREDNISONE
  6. GABAPENTIN. [Concomitant]
     Active Substance: GABAPENTIN
  7. ADCIRCA [Concomitant]
     Active Substance: TADALAFIL
  8. LASIX [Concomitant]
     Active Substance: FUROSEMIDE
  9. ALBUTEROL. [Concomitant]
     Active Substance: ALBUTEROL
  10. METFORMIN [Concomitant]
     Active Substance: METFORMIN HYDROCHLORIDE
  11. LISINOPRIL. [Concomitant]
     Active Substance: LISINOPRIL
  12. TYVASO [Suspect]
     Active Substance: TREPROSTINIL
     Dosage: 54 MICROGRAMS
     Dates: start: 20131004, end: 20140217
  13. LIPITOR [Concomitant]
     Active Substance: ATORVASTATIN CALCIUM
  14. KLOR-CON [Concomitant]
     Active Substance: POTASSIUM CHLORIDE

REACTIONS (4)
  - Fluid retention [Recovered/Resolved]
  - Dyspnoea [Recovered/Resolved]
  - Feeling abnormal [Recovered/Resolved]
  - Malaise [Recovered/Resolved]
